FAERS Safety Report 6280139-9 (Version None)
Quarter: 2009Q3

REPORT INFORMATION
  Report Type: 
  Country: None (occurrence: None)
  Receive Date: 20090723
  Receipt Date: 20090713
  Transmission Date: 20100115
  Serious: Yes (Other)
  Sender: FDA-Public Use
  Company Number: PHHY2009DE22423

PATIENT
  Sex: Male
  Weight: 70 kg

DRUGS (5)
  1. IMMUNOSPORIN [Suspect]
     Indication: DERMATITIS ATOPIC
     Dosage: 175 MG/DAY
     Route: 048
     Dates: start: 20090520, end: 20090527
  2. METFORMIN HCL [Concomitant]
     Indication: DIABETES MELLITUS
     Route: 048
  3. METOHEXAL [Concomitant]
     Indication: HYPERTENSION
     Route: 048
  4. ENALAPRIL MALEATE [Concomitant]
     Indication: HYPERTENSION
     Route: 048
  5. CARMEN [Concomitant]

REACTIONS (3)
  - BLISTER [None]
  - CONDITION AGGRAVATED [None]
  - DERMATITIS ATOPIC [None]
